FAERS Safety Report 5906553-6 (Version None)
Quarter: 2008Q4

REPORT INFORMATION
  Report Type: 
  Country: None (occurrence: None)
  Receive Date: 20081002
  Receipt Date: 20080919
  Transmission Date: 20090506
  Serious: No
  Sender: FDA-Public Use
  Company Number: US-B.I. PHARMACEUTICALS,INC./RIDGEFIELD-2008-BP-14830BP

PATIENT
  Sex: Male

DRUGS (1)
  1. FLOMAX [Suspect]

REACTIONS (5)
  - ABDOMINAL DISCOMFORT [None]
  - CONSTIPATION [None]
  - FEELING ABNORMAL [None]
  - HYPOTENSION [None]
  - TENSION [None]
